FAERS Safety Report 18816440 (Version 1)
Quarter: 2021Q1

REPORT INFORMATION
  Report Type: Spontaneous
  Country: US (occurrence: US)
  Receive Date: 20210201
  Receipt Date: 20210201
  Transmission Date: 20210419
  Serious: Yes (Other)
  Sender: FDA-Public Use
  Company Number: US-CIPLA LTD.-2020US08718

PATIENT

DRUGS (3)
  1. GABAPENTIN. [Suspect]
     Active Substance: GABAPENTIN
     Indication: PERIPHERAL SWELLING
     Dosage: 100 MILLIGRAM, BID
     Route: 065
  2. GABAPENTIN. [Suspect]
     Active Substance: GABAPENTIN
     Dosage: 100 MILLIGRAM, QD, AT NIGHT
     Route: 065
  3. GABAPENTIN. [Suspect]
     Active Substance: GABAPENTIN
     Indication: ERYTHEMA
     Dosage: 100 MILLIGRAM, TID
     Route: 065

REACTIONS (7)
  - Intentional product use issue [Unknown]
  - Somnolence [Unknown]
  - Drug effect less than expected [Unknown]
  - Product use in unapproved indication [Unknown]
  - Cholelithiasis [Unknown]
  - Off label use [Unknown]
  - Dizziness [Unknown]
